FAERS Safety Report 12244777 (Version 1)
Quarter: 2016Q2

REPORT INFORMATION
  Report Type: Spontaneous
  Country: US (occurrence: None)
  Receive Date: 20160406
  Receipt Date: 20160406
  Transmission Date: 20160815
  Serious: Yes (Other)
  Sender: FDA-Public Use
  Company Number: None

PATIENT
  Age: 61 Year
  Sex: Female
  Weight: 65.77 kg

DRUGS (5)
  1. L-LYSINE [Concomitant]
     Active Substance: LYSINE
  2. HIGH BLOOD PRESSURE MEDICINE [Concomitant]
  3. MULTI VITAMIN [Concomitant]
     Active Substance: VITAMINS
  4. KANK-A MOUTH PAIN [Suspect]
     Active Substance: BENZOCAINE
     Indication: APHTHOUS ULCER
     Dosage: 2 DROP(S) ONCE A DAY APPLIED TO A SURFACE, USUALLY THE SKIN
     Route: 061
     Dates: start: 20160327, end: 20160328
  5. CALCIUM [Concomitant]
     Active Substance: CALCIUM

REACTIONS (7)
  - Oral fungal infection [None]
  - Lymphadenopathy [None]
  - Dysphagia [None]
  - Lip swelling [None]
  - Glossodynia [None]
  - Fatigue [None]
  - Chemical injury [None]

NARRATIVE: CASE EVENT DATE: 20160329
